FAERS Safety Report 22788872 (Version 2)
Quarter: 2025Q2

REPORT INFORMATION
  Report Type: Spontaneous
  Country: CA (occurrence: CA)
  Receive Date: 20230804
  Receipt Date: 20250627
  Transmission Date: 20250716
  Serious: Yes (Hospitalization, Other)
  Sender: ABBVIE
  Company Number: None

PATIENT
  Age: 54 Year
  Sex: Male

DRUGS (20)
  1. CITALOPRAM HYDROBROMIDE [Suspect]
     Active Substance: CITALOPRAM HYDROBROMIDE
     Indication: Psychotic disorder
     Route: 048
  2. CELECOXIB [Suspect]
     Active Substance: CELECOXIB
     Indication: Psychotic disorder
     Route: 065
  3. KALETRA [Suspect]
     Active Substance: LOPINAVIR\RITONAVIR
     Indication: Depression
     Route: 048
  4. NORVIR [Suspect]
     Active Substance: RITONAVIR
     Indication: HIV infection
     Route: 065
  5. ATAZANAVIR [Suspect]
     Active Substance: ATAZANAVIR
     Indication: HIV infection
     Route: 065
  6. BUPROPION [Suspect]
     Active Substance: BUPROPION
     Indication: Depression
     Route: 065
  7. LAMIVUDINE [Suspect]
     Active Substance: LAMIVUDINE
     Indication: HIV infection
     Route: 050
  8. ZOPICLONE [Suspect]
     Active Substance: ZOPICLONE
     Indication: Bipolar disorder
     Route: 050
  9. SERTRALINE [Suspect]
     Active Substance: SERTRALINE HYDROCHLORIDE
     Indication: Bipolar disorder
     Route: 065
  10. ISENTRESS [Suspect]
     Active Substance: RALTEGRAVIR POTASSIUM
     Indication: HIV infection
     Dosage: DAILY DOSE: 800.0 MG
     Route: 065
  11. VALPROIC ACID [Suspect]
     Active Substance: VALPROIC ACID
     Indication: Bipolar disorder
     Route: 065
  12. CLONAZEPAM [Suspect]
     Active Substance: CLONAZEPAM
     Indication: Bipolar disorder
     Route: 065
  13. SUSTIVA [Suspect]
     Active Substance: EFAVIRENZ
     Indication: HIV infection
     Dosage: DAILY DOSE: 800.0 MG
     Route: 050
  14. ENFUVIRTIDE [Suspect]
     Active Substance: ENFUVIRTIDE
     Indication: HIV infection
     Route: 065
  15. RISPERIDONE [Suspect]
     Active Substance: RISPERIDONE
     Indication: Depression
     Route: 065
  16. VIREAD [Suspect]
     Active Substance: TENOFOVIR DISOPROXIL FUMARATE
     Indication: Product used for unknown indication
     Route: 065
  17. RITONAVIR [Suspect]
     Active Substance: RITONAVIR
     Indication: Depression
     Route: 065
  18. QUETIAPINE FUMARATE [Suspect]
     Active Substance: QUETIAPINE FUMARATE
     Indication: Depression
     Route: 048
  19. TENOFOVIR [Concomitant]
     Active Substance: TENOFOVIR
     Indication: Product used for unknown indication
  20. EMTRIVA [Concomitant]
     Active Substance: EMTRICITABINE
     Indication: Product used for unknown indication
     Route: 065

REACTIONS (10)
  - Anxiety [Unknown]
  - Depression suicidal [Unknown]
  - Tearfulness [Unknown]
  - Psychomotor skills impaired [Unknown]
  - Psychiatric decompensation [Unknown]
  - Depressive symptom [Unknown]
  - Paranoia [Unknown]
  - Suicidal ideation [Unknown]
  - Psychotic disorder [Unknown]
  - Product use in unapproved indication [Unknown]
